FAERS Safety Report 11797186 (Version 3)
Quarter: 2018Q2

REPORT INFORMATION
  Report Type: Spontaneous
  Country: GB (occurrence: GB)
  Receive Date: 20151203
  Receipt Date: 20180628
  Transmission Date: 20180711
  Serious: Yes (Other)
  Sender: FDA-Public Use
  Company Number: GB-PFIZER INC-2015413632

PATIENT
  Age: 12 Year
  Sex: Male

DRUGS (1)
  1. GENOTROPIN [Suspect]
     Active Substance: SOMATROPIN
     Dosage: AT 0.4 TO 0.6MG , ALTERNATE DAY

REACTIONS (4)
  - Lower respiratory tract infection [Unknown]
  - Drug dose omission [Unknown]
  - Ear infection [Unknown]
  - Malaise [Unknown]

NARRATIVE: CASE EVENT DATE: 2018
